FAERS Safety Report 12144023 (Version 2)
Quarter: 2016Q2

REPORT INFORMATION
  Report Type: Spontaneous
  Country: IT (occurrence: IT)
  Receive Date: 20160304
  Receipt Date: 20160418
  Transmission Date: 20160815
  Serious: Yes (Life-Threatening, Hospitalization, Other)
  Sender: FDA-Public Use
  Company Number: IT-ROCHE-1719384

PATIENT
  Age: 53 Year
  Sex: Male

DRUGS (3)
  1. NOZINAN [Suspect]
     Active Substance: LEVOMEPROMAZINE
     Indication: SEDATION
     Dosage: 25 MG FILM-COATED TABLETS^ 20 TABLETS
     Route: 048
  2. RIVOTRIL [Suspect]
     Active Substance: CLONAZEPAM
     Indication: SEDATION
     Dosage: 2.5 MG/ML ORAL DROPS, SOLUTION^ 10 ML BOTTLE
     Route: 048
     Dates: start: 20160220, end: 20160220
  3. TALOFEN [Suspect]
     Active Substance: PROMAZINE HYDROCHLORIDE
     Indication: SEDATION
     Dosage: 4 G / 100 ML ORAL DROPS, SOLUTION^ 30 ML BOTTLE
     Route: 048

REACTIONS (6)
  - Miosis [Recovered/Resolved]
  - Drug abuse [Unknown]
  - Coma [Recovered/Resolved]
  - Confusional state [Recovered/Resolved]
  - Suicide attempt [Unknown]
  - Overdose [Unknown]

NARRATIVE: CASE EVENT DATE: 20160220
